FAERS Safety Report 10251869 (Version 2)
Quarter: 2014Q2

REPORT INFORMATION
  Report Type: Spontaneous
  Country: US (occurrence: None)
  Receive Date: 20140619
  Receipt Date: 20140620
  Transmission Date: 20141212
  Serious: Yes (Other)
  Sender: FDA-Public Use
  Company Number: 2014-19749

PATIENT
  Age: 67 Year
  Sex: Male

DRUGS (4)
  1. EYLEA [Suspect]
     Indication: AGE-RELATED MACULAR DEGENERATION
     Dosage: 3 DOSES, INTRAOCULAR
     Route: 031
  2. TACROLIMUS [Concomitant]
  3. PREDNISONE [Concomitant]
  4. MYCOPHENOLATE MOFETIL (MYCOPHENOLATE MOFETIL) [Concomitant]

REACTIONS (7)
  - Glomerulonephritis membranous [None]
  - Arterial disorder [None]
  - Urine albumin/creatinine ratio increased [None]
  - Proteinuria [None]
  - Complications of transplanted kidney [None]
  - Kidney fibrosis [None]
  - Renal atrophy [None]
